FAERS Safety Report 21339620 (Version 2)
Quarter: 2022Q4

REPORT INFORMATION
  Report Type: Report from Study
  Country: US (occurrence: US)
  Receive Date: 20220915
  Receipt Date: 20221004
  Transmission Date: 20230112
  Serious: No
  Sender: FDA-Public Use
  Company Number: US-SA-SAC20220912001627

PATIENT
  Sex: Female

DRUGS (1)
  1. TERIFLUNOMIDE [Suspect]
     Active Substance: TERIFLUNOMIDE
     Dosage: 14 MG, QD
     Route: 048
     Dates: start: 20210329

REACTIONS (6)
  - Hypoacusis [Unknown]
  - Cerebral disorder [Unknown]
  - Memory impairment [Unknown]
  - Muscular weakness [Unknown]
  - Frustration tolerance decreased [Unknown]
  - Fatigue [Unknown]
